FAERS Safety Report 9262407 (Version 1)
Quarter: 2013Q2

REPORT INFORMATION
  Report Type: Spontaneous
  Country: IT (occurrence: None)
  Receive Date: 20130425
  Receipt Date: 20130425
  Transmission Date: 20140414
  Serious: Yes (Hospitalization)
  Sender: FDA-Public Use
  Company Number: SYM-2013-03052

PATIENT
  Age: 72 Year
  Sex: Female

DRUGS (4)
  1. FLUOROURACIL (FLUOROURACIL) (FLUOROURACIL) [Suspect]
     Indication: BREAST CANCER
  2. EPIRUBICIN (EPIRUBICIN) (EPIRUBICIN) [Suspect]
     Indication: BREAST CANCER
  3. CYCLOPHOSPHAMIDE [Suspect]
     Indication: BREAST CANCER
  4. THERAPEUTIC RADIO PHARMACEUTICALS (THERAPEUTIC RADIOPHARMACEUTICALS) [Concomitant]

REACTIONS (5)
  - Yersinia infection [None]
  - Endocarditis bacterial [None]
  - Weight decreased [None]
  - Aortic valve disease [None]
  - Arthralgia [None]
